FAERS Safety Report 20019278 (Version 1)
Quarter: 2021Q4

REPORT INFORMATION
  Report Type: Spontaneous
  Country: CN (occurrence: CN)
  Receive Date: 20211101
  Receipt Date: 20211101
  Transmission Date: 20220303
  Serious: Yes (Hospitalization, Other)
  Sender: FDA-Public Use
  Company Number: CN-SA-SAC20211029001332

PATIENT
  Age: 48 Year
  Sex: Female
  Weight: 43 kg

DRUGS (3)
  1. CAPECITABINE [Suspect]
     Active Substance: CAPECITABINE
     Dosage: 1.5 G, BID
     Route: 048
     Dates: start: 20210926, end: 20211002
  2. ELOXATIN [Suspect]
     Active Substance: OXALIPLATIN
     Dosage: 180MG, QD
     Route: 041
     Dates: start: 20210926, end: 20210926
  3. DEXTROSE [Concomitant]
     Active Substance: DEXTROSE
     Dosage: 500 ML, QD
     Route: 041
     Dates: start: 20210926, end: 20210926

REACTIONS (1)
  - Myelosuppression [Unknown]

NARRATIVE: CASE EVENT DATE: 20211016
